FAERS Safety Report 18643377 (Version 2)
Quarter: 2021Q1

REPORT INFORMATION
  Report Type: Spontaneous
  Country: FR (occurrence: FR)
  Receive Date: 20201221
  Receipt Date: 20210104
  Transmission Date: 20210419
  Serious: Yes (Hospitalization, Other)
  Sender: FDA-Public Use
  Company Number: FR-PFIZER INC-2020495255

PATIENT
  Age: 65 Year
  Sex: Male
  Weight: 74 kg

DRUGS (5)
  1. IMETH [Suspect]
     Active Substance: METHOTREXATE SODIUM
     Indication: RHEUMATIC DISORDER
     Dosage: 20 MG, WEEKLY
     Route: 048
     Dates: start: 2013, end: 201908
  2. XELJANZ [Suspect]
     Active Substance: TOFACITINIB CITRATE
     Indication: RHEUMATIC DISORDER
     Dosage: 10 MG, DAILY (1?01)
     Route: 048
     Dates: start: 20190531, end: 20190805
  3. TEMERIT [Concomitant]
     Active Substance: NEBIVOLOL
     Indication: HYPERTENSION
     Dosage: 1 DF, 1X/DAY
     Route: 048
     Dates: start: 2017
  4. ZANIDIP [Concomitant]
     Active Substance: LERCANIDIPINE HYDROCHLORIDE
     Indication: HYPERTENSION
     Dosage: 20 MG, 1X/DAY
     Route: 048
     Dates: start: 2017
  5. SPECIAFOLDINE [Concomitant]
     Active Substance: FOLIC ACID
     Indication: ANAEMIA FOLATE DEFICIENCY
     Dosage: 3 DF, WEEKLY
     Route: 048
     Dates: start: 2013, end: 201908

REACTIONS (2)
  - Pancreatitis acute [Recovered/Resolved]
  - Off label use [Unknown]

NARRATIVE: CASE EVENT DATE: 20190531
